FAERS Safety Report 4684656-4 (Version None)
Quarter: 2005Q2

REPORT INFORMATION
  Report Type: 
  Country: None (occurrence: None)
  Receive Date: 20050603
  Receipt Date: 20050530
  Transmission Date: 20051028
  Serious: Yes (Death)
  Sender: FDA-Public Use
  Company Number: 200510512BVD

PATIENT
  Age: 76 Year
  Sex: Male

DRUGS (4)
  1. AVALOX (MOXIFLOXACIN HYDROCHLORIDE) [Suspect]
     Indication: PNEUMONIA ASPIRATION
     Dosage: 400 MG, INTRAVENOUS
     Route: 042
     Dates: start: 20050323, end: 20050329
  2. TOREM /GFR/ [Concomitant]
  3. ISOPTIN [Concomitant]
  4. EUNERPAN [Concomitant]

REACTIONS (1)
  - DEATH [None]
